FAERS Safety Report 4496178-4 (Version None)
Quarter: 2004Q4

REPORT INFORMATION
  Report Type: 
  Country: None (occurrence: None)
  Receive Date: 20041102
  Receipt Date: 20041019
  Transmission Date: 20050328
  Serious: Yes (Other)
  Sender: FDA-Public Use
  Company Number: THYM-10331

PATIENT

DRUGS (1)
  1. THYMOGLOBULIN [Suspect]

REACTIONS (1)
  - SERUM SICKNESS [None]
